FAERS Safety Report 14075732 (Version 1)
Quarter: 2017Q4

REPORT INFORMATION
  Report Type: Spontaneous
  Country: US (occurrence: US)
  Receive Date: 20171010
  Receipt Date: 20171010
  Transmission Date: 20180321
  Serious: No
  Sender: FDA-Public Use
  Company Number: US-MYLANLABS-2016M1039565

PATIENT
  Sex: Female
  Weight: 77.98 kg

DRUGS (1)
  1. FENTANYL TRANSDERMAL SYSTEM [Suspect]
     Active Substance: FENTANYL
     Indication: PAIN
     Dosage: 100 ?G, QH, Q 48 HRS
     Route: 062

REACTIONS (2)
  - Hyperhidrosis [Not Recovered/Not Resolved]
  - Application site vesicles [Not Recovered/Not Resolved]
